FAERS Safety Report 14110276 (Version 1)
Quarter: 2017Q4

REPORT INFORMATION
  Report Type: Spontaneous
  Country: CO (occurrence: CO)
  Receive Date: 20171020
  Receipt Date: 20171020
  Transmission Date: 20180321
  Serious: Yes (Hospitalization)
  Sender: FDA-Public Use
  Company Number: CO-ASTELLAS-2017US042512

PATIENT
  Sex: Male

DRUGS (1)
  1. XTANDI [Suspect]
     Active Substance: ENZALUTAMIDE
     Indication: HORMONE-REFRACTORY PROSTATE CANCER
     Route: 048

REACTIONS (1)
  - Seizure [Recovering/Resolving]

NARRATIVE: CASE EVENT DATE: 20171011
